FAERS Safety Report 4437557-0 (Version None)
Quarter: 2004Q3

REPORT INFORMATION
  Report Type: 
  Country: None (occurrence: None)
  Receive Date: 20040831
  Receipt Date: 20040818
  Transmission Date: 20050211
  Serious: Yes (Life-Threatening, Other)
  Sender: FDA-Public Use
  Company Number: 200412694JP

PATIENT
  Sex: 0

DRUGS (2)
  1. TAXOTERE [Suspect]
     Route: 041
  2. TIENAM [Concomitant]

REACTIONS (4)
  - GROIN ABSCESS [None]
  - MYALGIA [None]
  - PYREXIA [None]
  - RHABDOMYOLYSIS [None]
